FAERS Safety Report 23723690 (Version 1)
Quarter: 2024Q2

REPORT INFORMATION
  Report Type: Spontaneous
  Country: CH (occurrence: CH)
  Receive Date: 20240409
  Receipt Date: 20240409
  Transmission Date: 20240716
  Serious: Yes (Life-Threatening, Hospitalization, Other)
  Sender: FDA-Public Use
  Company Number: None

PATIENT
  Age: 80 Year
  Sex: Female

DRUGS (1)
  1. IOPAMIRO [Suspect]
     Active Substance: IOPAMIDOL
     Indication: Spinal myelogram
     Dosage: IN TOTAL
     Route: 037
     Dates: start: 20240207, end: 20240207

REACTIONS (1)
  - Contrast encephalopathy [Unknown]

NARRATIVE: CASE EVENT DATE: 20240207
